FAERS Safety Report 4596810-0 (Version None)
Quarter: 2005Q1

REPORT INFORMATION
  Report Type: 
  Country: None (occurrence: None)
  Receive Date: 20050228
  Receipt Date: 20050216
  Transmission Date: 20050727
  Serious: Yes (Other)
  Sender: FDA-Public Use
  Company Number: 200510686BCC

PATIENT
  Age: 72 Year
  Sex: Female
  Weight: 62.1428 kg

DRUGS (4)
  1. ASPIRIN [Suspect]
     Dosage: 81 MG, QD, ORAL
     Route: 048
  2. FOSAMAX [Concomitant]
  3. METAMUCIL-2 [Concomitant]
  4. CENTRUM [Concomitant]

REACTIONS (1)
  - THROMBOSIS [None]
